FAERS Safety Report 4987398-0 (Version None)
Quarter: 2006Q2

REPORT INFORMATION
  Report Type: 
  Country: None (occurrence: None)
  Receive Date: 20060424
  Receipt Date: 20060407
  Transmission Date: 20061013
  Serious: Yes (Death, Other)
  Sender: FDA-Public Use
  Company Number: US-2006-008496

PATIENT
  Age: 69 Year
  Sex: Male

DRUGS (8)
  1. FLUDARA [Suspect]
     Indication: BONE MARROW CONDITIONING REGIMEN
     Dosage: 30 MG/M2, 1X/DAY D-7 THROUGH D-2, INTRAVENOUS
     Route: 042
  2. BUSULFAN (BUSULFAN) [Suspect]
     Indication: BONE MARROW CONDITIONING REGIMEN
     Dosage: 3.2 MG/KG, 1X/DAY D 0, D-9, INTRAVENOUS
     Route: 042
  3. ANTITHYMOCYTE (IMMUNOGLOBULIN (ANTITHYMOCYTE IMMUNOGLOBULIN) [Suspect]
     Indication: BONE MARROW CONDITIONING REGIMEN
     Dosage: 15 MG/KG, 1X/DAY D-5 TO D-2, INTRAVENOUS
     Route: 042
  4. CYCLOSPORINE [Concomitant]
  5. METHOTREXATE [Concomitant]
  6. FLUCONAZOLE [Concomitant]
  7. GRANULOCYTE COLONY STIMULATING FACTOR (GRANULOCYTE COLONY STIMULATING [Concomitant]
  8. ANTIINFECTIVES [Concomitant]

REACTIONS (7)
  - FEBRILE NEUTROPENIA [None]
  - GRAFT VERSUS HOST DISEASE [None]
  - MALIGNANT NEOPLASM PROGRESSION [None]
  - MENTAL STATUS CHANGES [None]
  - PANCYTOPENIA [None]
  - SOMNOLENCE [None]
  - VENOOCCLUSIVE LIVER DISEASE [None]
